FAERS Safety Report 9684128 (Version 1)
Quarter: 2013Q4

REPORT INFORMATION
  Report Type: Spontaneous
  Country: US (occurrence: None)
  Receive Date: 20131111
  Receipt Date: 20131111
  Transmission Date: 20140711
  Serious: Yes (Other)
  Sender: FDA-Public Use
  Company Number: None

PATIENT
  Age: 35 Year
  Sex: Female
  Weight: 58.51 kg

DRUGS (2)
  1. EFFEXOR [Suspect]
     Indication: ANXIETY
     Dates: start: 2011, end: 2013
  2. EFFEXOR [Suspect]
     Indication: DEPRESSION
     Dates: start: 2011, end: 2013

REACTIONS (11)
  - Drug withdrawal syndrome [None]
  - Anxiety [None]
  - Nightmare [None]
  - Anger [None]
  - Feeling abnormal [None]
  - Nightmare [None]
  - Hyperhidrosis [None]
  - Tremor [None]
  - Tremor [None]
  - Gastrooesophageal reflux disease [None]
  - Poisoning [None]
